FAERS Safety Report 11124786 (Version 3)
Quarter: 2015Q2

REPORT INFORMATION
  Report Type: Spontaneous
  Country: FR (occurrence: FR)
  Receive Date: 20150520
  Receipt Date: 20150604
  Transmission Date: 20150821
  Serious: Yes (Hospitalization)
  Sender: FDA-Public Use
  Company Number: FR-ROCHE-1579891

PATIENT
  Age: 59 Year
  Sex: Female
  Weight: 90 kg

DRUGS (16)
  1. TAXOTERE [Concomitant]
     Active Substance: DOCETAXEL
     Route: 065
     Dates: start: 20150521
  2. ZOPICLONE [Concomitant]
     Active Substance: ZOPICLONE
     Dosage: 2 TAB AT BEDTIME
     Route: 065
  3. HERCEPTIN [Concomitant]
     Active Substance: TRASTUZUMAB
     Route: 042
     Dates: start: 20150430
  4. JANUMET [Concomitant]
     Active Substance: METFORMIN HYDROCHLORIDE\SITAGLIPTIN PHOSPHATE
     Dosage: 50 MG/1000 MG 1 TABLET IN THE MORNING AND EVENING
     Route: 065
  5. AMAREL [Concomitant]
     Active Substance: GLIMEPIRIDE
     Dosage: 1 MG HALF TABLET IN THE MORNING
     Route: 065
  6. TAXOTERE [Concomitant]
     Active Substance: DOCETAXEL
     Indication: BREAST CANCER
     Route: 042
     Dates: start: 20150410
  7. HERCEPTIN [Concomitant]
     Active Substance: TRASTUZUMAB
     Route: 042
     Dates: start: 20150410
  8. COKENZEN [Concomitant]
     Active Substance: CANDESARTAN CILEXETIL\HYDROCHLOROTHIAZIDE
     Dosage: 16/12.5 MG, IN MORNING
     Route: 065
  9. NEBILOX [Concomitant]
     Active Substance: NEBIVOLOL HYDROCHLORIDE
     Route: 065
  10. TAXOTERE [Concomitant]
     Active Substance: DOCETAXEL
     Route: 065
     Dates: start: 20150430
  11. HERCEPTIN [Concomitant]
     Active Substance: TRASTUZUMAB
     Route: 042
     Dates: start: 20150521
  12. XANAX [Concomitant]
     Active Substance: ALPRAZOLAM
     Dosage: 1 TABLET IN THE EVENING,
     Route: 065
  13. OGASTORO [Concomitant]
     Active Substance: LANSOPRAZOLE
     Dosage: IN THE EVENING
     Route: 065
  14. PERJETA [Suspect]
     Active Substance: PERTUZUMAB
     Indication: BREAST CANCER
     Route: 042
     Dates: start: 20150410, end: 20150410
  15. SEROPLEX [Concomitant]
     Active Substance: ESCITALOPRAM OXALATE
     Dosage: IN MORNING
     Route: 065
  16. KLIPAL CODEINE [Concomitant]
     Active Substance: ACETAMINOPHEN\CODEINE PHOSPHATE
     Dosage: 1 TABLET IN THE EVENING,
     Route: 065

REACTIONS (8)
  - Metabolic acidosis [Unknown]
  - Septic shock [Unknown]
  - General physical health deterioration [Not Recovered/Not Resolved]
  - Diarrhoea [Recovering/Resolving]
  - Acute kidney injury [Recovering/Resolving]
  - Urinary tract infection [Unknown]
  - Pelvic pain [Unknown]
  - Vomiting [Recovering/Resolving]

NARRATIVE: CASE EVENT DATE: 20150415
